FAERS Safety Report 7921470-8 (Version None)
Quarter: 2011Q4

REPORT INFORMATION
  Report Type: 
  Country: None (occurrence: None)
  Receive Date: 20111117
  Receipt Date: 20110927
  Transmission Date: 20120403
  Serious: No
  Sender: FDA-Public Use
  Company Number: US-MYLANLABS-2011S1018535

PATIENT
  Age: 59 Year
  Sex: Female

DRUGS (2)
  1. NADOLOL [Suspect]
     Indication: TACHYCARDIA
     Route: 048
     Dates: start: 20110724, end: 20110828
  2. CORGARD [Suspect]
     Indication: TACHYCARDIA
     Route: 048
     Dates: start: 20110829

REACTIONS (10)
  - NAUSEA [None]
  - EYE IRRITATION [None]
  - DRY EYE [None]
  - MICTURITION URGENCY [None]
  - ABDOMINAL PAIN UPPER [None]
  - FLANK PAIN [None]
  - PYREXIA [None]
  - FEELING ABNORMAL [None]
  - VISION BLURRED [None]
  - GLOSSODYNIA [None]
